FAERS Safety Report 4299470-1 (Version None)
Quarter: 2004Q1

REPORT INFORMATION
  Report Type: 
  Country: None (occurrence: None)
  Receive Date: 20040219
  Receipt Date: 20040216
  Transmission Date: 20041129
  Serious: Yes (Other)
  Sender: FDA-Public Use
  Company Number: US-GLAXOSMITHKLINE-A0498217A

PATIENT
  Age: 13 Year
  Sex: Male

DRUGS (2)
  1. PAXIL [Suspect]
     Indication: INSOMNIA
     Dosage: 20MG AT NIGHT
     Route: 048
     Dates: end: 20030101
  2. METADATE CD [Suspect]
     Dosage: 20MG IN THE MORNING
     Route: 048
     Dates: start: 20020101, end: 20030101

REACTIONS (7)
  - ABNORMAL DREAMS [None]
  - DECREASED APPETITE [None]
  - HALLUCINATION [None]
  - INSOMNIA [None]
  - MUSCLE TWITCHING [None]
  - PSYCHOTIC DISORDER [None]
  - SCHIZOPHRENIA [None]
